FAERS Safety Report 4369175-7 (Version None)
Quarter: 2004Q2

REPORT INFORMATION
  Report Type: 
  Country: None (occurrence: None)
  Receive Date: 20040527
  Receipt Date: 20040510
  Transmission Date: 20050107
  Serious: Yes (Other)
  Sender: FDA-Public Use
  Company Number: US_0405102867

PATIENT

DRUGS (1)
  1. STRATTERA [Suspect]

REACTIONS (1)
  - STEVENS-JOHNSON SYNDROME [None]
